FAERS Safety Report 16909155 (Version 1)
Quarter: 2019Q4

REPORT INFORMATION
  Report Type: Spontaneous
  Country: FR (occurrence: FR)
  Receive Date: 20191011
  Receipt Date: 20191011
  Transmission Date: 20200122
  Serious: Yes (Life-Threatening, Hospitalization)
  Sender: FDA-Public Use
  Company Number: FR-PFIZER INC-2019435716

PATIENT
  Age: 38 Year
  Sex: Female
  Weight: 72 kg

DRUGS (3)
  1. IDARUBICIN HCL [Suspect]
     Active Substance: IDARUBICIN HYDROCHLORIDE
     Indication: LYMPHANGIOLEIOMYOMATOSIS
     Dosage: 9 MG/M2, UNK
     Route: 041
     Dates: start: 20190601, end: 20190605
  2. MIDOSTAURINE [Suspect]
     Active Substance: MIDOSTAURIN
     Indication: LYMPHANGIOLEIOMYOMATOSIS
     Dosage: 100 MG, 1X/DAY
     Route: 048
     Dates: start: 20190606
  3. CYTARABINE. [Suspect]
     Active Substance: CYTARABINE
     Indication: LYMPHANGIOLEIOMYOMATOSIS
     Dosage: 200 MG/M2, UNK
     Route: 041
     Dates: start: 20190531, end: 20190606

REACTIONS (1)
  - Pericarditis constrictive [Recovering/Resolving]

NARRATIVE: CASE EVENT DATE: 201906
